FAERS Safety Report 7302582-9 (Version None)
Quarter: 2011Q1

REPORT INFORMATION
  Report Type: 
  Country: None (occurrence: None)
  Receive Date: 20110218
  Receipt Date: 20110215
  Transmission Date: 20110831
  Serious: Yes (Life-Threatening, Other)
  Sender: FDA-Public Use
  Company Number: US-PFIZER INC-2011034277

PATIENT
  Sex: Female
  Weight: 72.562 kg

DRUGS (3)
  1. PRISTIQ [Suspect]
     Dosage: 12.5 MG, 1X/DAY
     Route: 048
  2. PRISTIQ [Suspect]
     Indication: MENOPAUSAL SYMPTOMS
     Dosage: 50 MG, 1X/DAY
     Route: 048
     Dates: start: 20100901
  3. PRISTIQ [Suspect]
     Dosage: UNKNOWN DOSE
     Route: 048

REACTIONS (2)
  - WEIGHT DECREASED [None]
  - SUICIDAL IDEATION [None]
